FAERS Safety Report 7132627-0 (Version None)
Quarter: 2010Q4

REPORT INFORMATION
  Report Type: 
  Country: None (occurrence: None)
  Receive Date: 20101202
  Receipt Date: 20101122
  Transmission Date: 20110411
  Serious: Yes (Hospitalization)
  Sender: FDA-Public Use
  Company Number: CH-JNJFOC-20101106464

PATIENT
  Age: 23 Year
  Sex: Male

DRUGS (4)
  1. RISPERDAL [Suspect]
     Indication: PSYCHOTIC DISORDER
     Route: 048
  2. SERTRALINE HYDROCHLORIDE [Suspect]
     Indication: PSYCHOTIC DISORDER
     Route: 048
  3. IMOVANE [Concomitant]
     Route: 065
  4. COCAINE [Concomitant]
     Route: 065

REACTIONS (2)
  - CUSHING'S SYNDROME [None]
  - PANCREATITIS ACUTE [None]
